FAERS Safety Report 26067154 (Version 2)
Quarter: 2025Q4

REPORT INFORMATION
  Report Type: Report from Study
  Country: AU (occurrence: AU)
  Receive Date: 20251119
  Receipt Date: 20251201
  Transmission Date: 20260119
  Serious: Yes (Death)
  Sender: TEVA
  Company Number: AU-TEVA-VS-3393351

PATIENT

DRUGS (1)
  1. DEFERASIROX [Suspect]
     Active Substance: DEFERASIROX
     Indication: Product used for unknown indication
     Route: 065

REACTIONS (1)
  - Drug-induced liver injury [Fatal]
